FAERS Safety Report 16967968 (Version 2)
Quarter: 2019Q4

REPORT INFORMATION
  Report Type: Spontaneous
  Country: JP (occurrence: JP)
  Receive Date: 20191028
  Receipt Date: 20191126
  Transmission Date: 20200122
  Serious: Yes (Hospitalization, Other)
  Sender: FDA-Public Use
  Company Number: JP-ELI_LILLY_AND_COMPANY-JP201910012534

PATIENT
  Age: 70 Year
  Sex: Male

DRUGS (3)
  1. ERBITUX [Suspect]
     Active Substance: CETUXIMAB
     Indication: TONGUE NEOPLASM MALIGNANT STAGE UNSPECIFIED
     Dosage: UNK, UNKNOWN
     Route: 041
     Dates: start: 20190910
  2. CARBOPLATIN. [Suspect]
     Active Substance: CARBOPLATIN
     Indication: TONGUE NEOPLASM MALIGNANT STAGE UNSPECIFIED
     Dosage: UNK, WEEKLY (1/W)
     Dates: start: 20190910, end: 20190924
  3. PACLITAXEL. [Concomitant]
     Active Substance: PACLITAXEL
     Indication: TONGUE NEOPLASM MALIGNANT STAGE UNSPECIFIED
     Dosage: UNK
     Dates: start: 20190910, end: 20190924

REACTIONS (3)
  - Staphylococcal infection [Recovered/Resolved]
  - Necrotising fasciitis [Recovered/Resolved]
  - Neutrophil count decreased [Recovered/Resolved]

NARRATIVE: CASE EVENT DATE: 201909
